FAERS Safety Report 21451375 (Version 1)
Quarter: 2022Q4

REPORT INFORMATION
  Report Type: Spontaneous
  Country: US (occurrence: US)
  Receive Date: 20221013
  Receipt Date: 20221013
  Transmission Date: 20230113
  Serious: Yes (Other)
  Sender: FDA-Public Use
  Company Number: US-BRISTOL-MYERS SQUIBB COMPANY-2022-116589

PATIENT
  Age: 71 Year
  Sex: Male
  Weight: 112 kg

DRUGS (1)
  1. THALOMID [Suspect]
     Active Substance: THALIDOMIDE
     Indication: Neurodermatitis
     Dosage: DOSE : 15 MG;     FREQ : ONCE DAILY
     Route: 048
     Dates: start: 202109

REACTIONS (3)
  - Insomnia [Unknown]
  - Off label use [Unknown]
  - Therapeutic product effect delayed [Unknown]
